FAERS Safety Report 4322349-3 (Version None)
Quarter: 2004Q1

REPORT INFORMATION
  Report Type: 
  Country: None (occurrence: None)
  Receive Date: 20040319
  Receipt Date: 20040303
  Transmission Date: 20041129
  Serious: Yes (Other)
  Sender: FDA-Public Use
  Company Number: ZANA001141

PATIENT
  Age: 45 Year
  Sex: Female

DRUGS (1)
  1. SIRDALUD (TIZANIDINE HYDROCHLORIDE) [Suspect]
     Indication: BACK PAIN
     Dosage: ORAL
     Route: 048

REACTIONS (4)
  - HALLUCINATION [None]
  - MURDER [None]
  - RESTLESSNESS [None]
  - SUICIDAL IDEATION [None]
